FAERS Safety Report 5085604-8 (Version None)
Quarter: 2006Q3

REPORT INFORMATION
  Report Type: 
  Country: None (occurrence: None)
  Receive Date: 20060822
  Receipt Date: 20060817
  Transmission Date: 20061208
  Serious: Yes (Hospitalization, Other)
  Sender: FDA-Public Use
  Company Number: CH-GLAXOSMITHKLINE-B0434691A

PATIENT
  Age: 65 Year
  Sex: Male

DRUGS (13)
  1. SERETIDE [Suspect]
     Indication: ASTHMA
     Route: 055
  2. RIMACTANE [Concomitant]
     Indication: TUBERCULOSIS
     Dosage: 600MG PER DAY
     Route: 065
     Dates: start: 20060601
  3. RIMIFON [Concomitant]
     Indication: TUBERCULOSIS
     Dosage: 300MG PER DAY
     Route: 065
     Dates: start: 20060601
  4. MYAMBUTOL [Concomitant]
     Indication: TUBERCULOSIS
     Dosage: 1600MG PER DAY
     Route: 065
     Dates: start: 20060601
  5. ASPIRIN [Concomitant]
     Indication: DRUG USE FOR UNKNOWN INDICATION
     Dosage: 100MG PER DAY
     Route: 048
  6. PYRAZINAMIDE [Concomitant]
     Indication: TUBERCULOSIS
     Dosage: 2000MG PER DAY
     Route: 065
     Dates: start: 20060601
  7. ALLOPUR [Concomitant]
     Indication: GOUT
     Dosage: 300MG PER DAY
     Route: 048
     Dates: end: 20060616
  8. OMEPRAZOLE [Concomitant]
     Indication: DRUG USE FOR UNKNOWN INDICATION
     Dosage: 10MG PER DAY
     Route: 048
  9. TORSEMIDE [Concomitant]
     Indication: DRUG USE FOR UNKNOWN INDICATION
     Dosage: 10MG PER DAY
     Route: 048
  10. ALDACTONE [Concomitant]
     Indication: DRUG USE FOR UNKNOWN INDICATION
     Dosage: 50MG PER DAY
     Route: 048
  11. VENTOLIN [Concomitant]
     Indication: ASTHMA
     Dosage: 100MCG PER DAY
     Route: 055
  12. SPIRIVA [Concomitant]
     Indication: ASTHMA
     Dosage: 10MCG PER DAY
     Route: 045
  13. INSULIN [Concomitant]

REACTIONS (2)
  - ORAL FUNGAL INFECTION [None]
  - PULMONARY TUBERCULOSIS [None]
